FAERS Safety Report 6396849-9 (Version None)
Quarter: 2009Q4

REPORT INFORMATION
  Report Type: 
  Country: None (occurrence: None)
  Receive Date: 20091012
  Receipt Date: 20090603
  Transmission Date: 20100525
  Serious: No
  Sender: FDA-Public Use
  Company Number: US-ASTRAZENECA-2009UW14147

PATIENT
  Age: 82 Year
  Sex: Female
  Weight: 52.6 kg

DRUGS (3)
  1. SYMBICORT [Suspect]
     Indication: EMPHYSEMA
     Route: 055
  2. ASPIRIN [Concomitant]
  3. COMBIVENT [Concomitant]

REACTIONS (2)
  - EMPHYSEMA [None]
  - VISION BLURRED [None]
